FAERS Safety Report 20186225 (Version 3)
Quarter: 2022Q3

REPORT INFORMATION
  Report Type: Spontaneous
  Country: US (occurrence: US)
  Receive Date: 20211215
  Receipt Date: 20220930
  Transmission Date: 20221027
  Serious: No
  Sender: FDA-Public Use
  Company Number: US-BIOGEN-2021BI01077067

PATIENT
  Age: 46 Year
  Sex: Female

DRUGS (1)
  1. TECFIDERA [Suspect]
     Active Substance: DIMETHYL FUMARATE
     Indication: Relapsing-remitting multiple sclerosis
     Route: 050
     Dates: start: 202101, end: 202110

REACTIONS (3)
  - COVID-19 [Not Recovered/Not Resolved]
  - Multiple sclerosis [Unknown]
  - Flushing [Unknown]

NARRATIVE: CASE EVENT DATE: 20220801
